FAERS Safety Report 16288727 (Version 1)
Quarter: 2019Q2

REPORT INFORMATION
  Report Type: Spontaneous
  Country: US (occurrence: US)
  Receive Date: 20190509
  Receipt Date: 20190509
  Transmission Date: 20190711
  Serious: No
  Sender: FDA-Public Use
  Company Number: US-JNJFOC-20190435165

PATIENT
  Sex: Female

DRUGS (2)
  1. ORTHO NOVUM 1/35 [Suspect]
     Active Substance: ETHINYL ESTRADIOL\NORETHINDRONE
     Indication: POLYCYSTIC OVARIES
     Route: 048
  2. NORETHINDRONE AND ETHINYL ESTRADIOL [Suspect]
     Active Substance: ETHINYL ESTRADIOL\NORETHINDRONE
     Indication: PRODUCT USED FOR UNKNOWN INDICATION
     Route: 048

REACTIONS (6)
  - Off label use [Unknown]
  - Headache [Recovered/Resolved]
  - Feeling abnormal [Unknown]
  - Insomnia [Recovered/Resolved]
  - Product use in unapproved indication [Unknown]
  - Nausea [Recovered/Resolved]
